FAERS Safety Report 5068997-7 (Version None)
Quarter: 2006Q3

REPORT INFORMATION
  Report Type: 
  Country: None (occurrence: None)
  Receive Date: 20060802
  Receipt Date: 20060727
  Transmission Date: 20061208
  Serious: Yes (Death, Other)
  Sender: FDA-Public Use
  Company Number: PHHO2006BR12154

PATIENT
  Sex: Male

DRUGS (1)
  1. ZELMAC / HTF 919A [Suspect]
     Route: 048

REACTIONS (3)
  - DEATH [None]
  - POLYP [None]
  - POLYPECTOMY [None]
